FAERS Safety Report 14570608 (Version 1)
Quarter: 2018Q1

REPORT INFORMATION
  Report Type: Spontaneous
  Country: US (occurrence: US)
  Receive Date: 20180226
  Receipt Date: 20180226
  Transmission Date: 20180509
  Serious: No
  Sender: FDA-Public Use
  Company Number: US-ALVOGEN-2017-ALVOGEN-094636

PATIENT

DRUGS (1)
  1. OSELTAMIVIR [Suspect]
     Active Substance: OSELTAMIVIR
     Indication: INFLUENZA

REACTIONS (2)
  - Product taste abnormal [Unknown]
  - Drug ineffective [Unknown]
